FAERS Safety Report 15809064 (Version 3)
Quarter: 2019Q1

REPORT INFORMATION
  Report Type: Spontaneous
  Country: NZ (occurrence: NZ)
  Receive Date: 20190110
  Receipt Date: 20190116
  Transmission Date: 20190417
  Serious: Yes (Hospitalization, Other)
  Sender: FDA-Public Use
  Company Number: NZ-B.I. PHARMACEUTICALS,INC./RIDGEFIELD-2019-BI-000823

PATIENT
  Age: 79 Year
  Sex: Male

DRUGS (1)
  1. OFEV [Suspect]
     Active Substance: NINTEDANIB
     Indication: IDIOPATHIC PULMONARY FIBROSIS
     Route: 048
     Dates: start: 201812, end: 201812

REACTIONS (6)
  - Idiopathic pulmonary fibrosis [Unknown]
  - Atrial fibrillation [Unknown]
  - Dehydration [Unknown]
  - Nausea [Unknown]
  - Lethargy [Unknown]
  - Palpitations [Unknown]
